FAERS Safety Report 24419228 (Version 2)
Quarter: 2024Q4

REPORT INFORMATION
  Report Type: Report from Study
  Country: US (occurrence: US)
  Receive Date: 20241009
  Receipt Date: 20241018
  Transmission Date: 20250114
  Serious: No
  Sender: ROCHE
  Company Number: US-ROCHE-3466402

PATIENT

DRUGS (5)
  1. ACTIVASE [Suspect]
     Active Substance: ALTEPLASE
     Indication: Breast cancer female
     Dosage: ADMINISTER 2 MG ACTIVASE INTRA-CATHETER Q7D
     Route: 050
  2. XGEVA [Concomitant]
     Active Substance: DENOSUMAB
  3. EMEND [Concomitant]
     Active Substance: APREPITANT
  4. NEULASTA [Concomitant]
     Active Substance: PEGFILGRASTIM
  5. TRODELVY [Concomitant]
     Active Substance: SACITUZUMAB GOVITECAN-HZIY

REACTIONS (2)
  - Off label use [Unknown]
  - No adverse event [Unknown]
